FAERS Safety Report 19383093 (Version 1)
Quarter: 2021Q2

REPORT INFORMATION
  Report Type: Report from Study
  Country: FR (occurrence: FR)
  Receive Date: 20210607
  Receipt Date: 20210607
  Transmission Date: 20210717
  Serious: Yes (Other)
  Sender: FDA-Public Use
  Company Number: FR-TAKEDA-FR201738201

PATIENT
  Age: 66 Year
  Sex: Female

DRUGS (31)
  1. TEDUGLUTIDE [Suspect]
     Active Substance: TEDUGLUTIDE
     Dosage: 3.4 MILLIGRAM (0.0500 MILLGRAM/KILLOGRAM), 1/WEEK
     Route: 065
     Dates: start: 20160504, end: 20160901
  2. TEDUGLUTIDE [Suspect]
     Active Substance: TEDUGLUTIDE
     Dosage: 3.1 MILLIGRAM (0.0500 MILLGRAM/KILLOGRAM), 1/WEEK
     Route: 065
     Dates: start: 20161105, end: 20170102
  3. TEDUGLUTIDE [Suspect]
     Active Substance: TEDUGLUTIDE
     Dosage: 2.6 MILLIGRAM (0.0500 MILLGRAM/KILLOGRAM),1/WEEK
     Route: 065
     Dates: start: 20190919
  4. COUMADINE [Concomitant]
     Active Substance: WARFARIN SODIUM
     Indication: SUBCLAVIAN VEIN THROMBOSIS
     Dosage: 2.00 MILLIGRAM, DEPENDS ON INR
     Route: 048
     Dates: start: 20180910
  5. TEDUGLUTIDE [Suspect]
     Active Substance: TEDUGLUTIDE
     Indication: SHORT-BOWEL SYNDROME
     Dosage: UNK
     Route: 065
     Dates: start: 20160504
  6. TEDUGLUTIDE [Suspect]
     Active Substance: TEDUGLUTIDE
     Indication: SHORT-BOWEL SYNDROME
     Dosage: UNK
     Route: 065
     Dates: start: 20160504
  7. TEDUGLUTIDE [Suspect]
     Active Substance: TEDUGLUTIDE
     Dosage: 3.4 MILLIGRAM (0.0500 MILLGRAM/KILLOGRAM), 1/WEEK
     Route: 065
     Dates: start: 20160504, end: 20160901
  8. TEDUGLUTIDE [Suspect]
     Active Substance: TEDUGLUTIDE
     Dosage: 3.1 MILLIGRAM (0.0500 MILLGRAM/KILLOGRAM), 1/WEEK
     Route: 065
     Dates: start: 20161105, end: 20170102
  9. TEDUGLUTIDE [Suspect]
     Active Substance: TEDUGLUTIDE
     Dosage: 3.4 MILLIGRAM (0.0500 MILLGRAM/KILLOGRAM), 1/WEEK
     Route: 065
     Dates: start: 20160504, end: 20160901
  10. TEDUGLUTIDE [Suspect]
     Active Substance: TEDUGLUTIDE
     Dosage: 3.00 MILLIGRAM (0.0500 MILLGRAM/KILLOGRAM), 1/WEEK
     Route: 065
     Dates: start: 20180303, end: 20190918
  11. TEDUGLUTIDE [Suspect]
     Active Substance: TEDUGLUTIDE
     Dosage: 3.00 MILLIGRAM (0.0500 MILLGRAM/KILLOGRAM), 1/WEEK
     Route: 065
     Dates: start: 20180303, end: 20190918
  12. TEDUGLUTIDE [Suspect]
     Active Substance: TEDUGLUTIDE
     Dosage: 2.6 MILLIGRAM (0.0500 MILLGRAM/KILLOGRAM),1/WEEK
     Route: 065
     Dates: start: 20190919
  13. TEDUGLUTIDE [Suspect]
     Active Substance: TEDUGLUTIDE
     Indication: SHORT-BOWEL SYNDROME
     Dosage: UNK
     Route: 065
     Dates: start: 20160504
  14. TEDUGLUTIDE [Suspect]
     Active Substance: TEDUGLUTIDE
     Dosage: 3.4 MILLIGRAM (0.0500 MILLGRAM/KILLOGRAM), 1/WEEK
     Route: 065
     Dates: start: 20160504, end: 20160901
  15. TEDUGLUTIDE [Suspect]
     Active Substance: TEDUGLUTIDE
     Dosage: 3.2 MILLIGRAM (0.0500 MILLGRAM/KILLOGRAM), 1/WEEK
     Route: 065
     Dates: start: 20160902, end: 20161104
  16. TEDUGLUTIDE [Suspect]
     Active Substance: TEDUGLUTIDE
     Dosage: 3.1 MILLIGRAM (0.0500 MILLGRAM/KILLOGRAM), 1/WEEK
     Route: 065
     Dates: start: 20161105, end: 20170102
  17. TEDUGLUTIDE [Suspect]
     Active Substance: TEDUGLUTIDE
     Dosage: 2.8 MILLIGRAM (0.0500 MILLGRAM/KILLOGRAM),1/WEEK
     Route: 065
     Dates: start: 20170102, end: 20180307
  18. TEDUGLUTIDE [Suspect]
     Active Substance: TEDUGLUTIDE
     Dosage: 2.8 MILLIGRAM (0.0500 MILLGRAM/KILLOGRAM),1/WEEK
     Route: 065
     Dates: start: 20170102, end: 20180307
  19. FRESUBIN [Concomitant]
     Active Substance: AMINO ACIDS\DEXTROSE\ELECTROLYTES NOS\SOYBEAN OIL\VITAMINS
     Indication: NUTRITIONAL CONDITION ABNORMAL
     Dosage: 200 GRAM, BID
     Route: 048
     Dates: start: 20170914
  20. TEDUGLUTIDE [Suspect]
     Active Substance: TEDUGLUTIDE
     Dosage: 3.2 MILLIGRAM (0.0500 MILLGRAM/KILLOGRAM), 1/WEEK
     Route: 065
     Dates: start: 20160902, end: 20161104
  21. TEDUGLUTIDE [Suspect]
     Active Substance: TEDUGLUTIDE
     Dosage: 3.1 MILLIGRAM (0.0500 MILLGRAM/KILLOGRAM), 1/WEEK
     Route: 065
     Dates: start: 20161105, end: 20170102
  22. TEDUGLUTIDE [Suspect]
     Active Substance: TEDUGLUTIDE
     Dosage: 2.8 MILLIGRAM (0.0500 MILLGRAM/KILLOGRAM),1/WEEK
     Route: 065
     Dates: start: 20170102, end: 20180307
  23. TEDUGLUTIDE [Suspect]
     Active Substance: TEDUGLUTIDE
     Dosage: 2.8 MILLIGRAM (0.0500 MILLGRAM/KILLOGRAM),1/WEEK
     Route: 065
     Dates: start: 20170102, end: 20180307
  24. TEDUGLUTIDE [Suspect]
     Active Substance: TEDUGLUTIDE
     Dosage: 3.00 MILLIGRAM (0.0500 MILLGRAM/KILLOGRAM), 1/WEEK
     Route: 065
     Dates: start: 20180303, end: 20190918
  25. CALCIUM GLUCONATE. [Concomitant]
     Active Substance: CALCIUM GLUCONATE
     Indication: CALCIUM DEFICIENCY
     Dosage: 3.00 AMPS. 2 TIMES PER WEEK
     Route: 042
     Dates: start: 20170914
  26. TEDUGLUTIDE [Suspect]
     Active Substance: TEDUGLUTIDE
     Indication: SHORT-BOWEL SYNDROME
     Dosage: UNK
     Route: 065
     Dates: start: 20160504
  27. TEDUGLUTIDE [Suspect]
     Active Substance: TEDUGLUTIDE
     Dosage: 3.2 MILLIGRAM (0.0500 MILLGRAM/KILLOGRAM), 1/WEEK
     Route: 065
     Dates: start: 20160902, end: 20161104
  28. TEDUGLUTIDE [Suspect]
     Active Substance: TEDUGLUTIDE
     Dosage: 3.2 MILLIGRAM (0.0500 MILLGRAM/KILLOGRAM), 1/WEEK
     Route: 065
     Dates: start: 20160902, end: 20161104
  29. TEDUGLUTIDE [Suspect]
     Active Substance: TEDUGLUTIDE
     Dosage: 3.00 MILLIGRAM (0.0500 MILLGRAM/KILLOGRAM), 1/WEEK
     Route: 065
     Dates: start: 20180303, end: 20190918
  30. TEDUGLUTIDE [Suspect]
     Active Substance: TEDUGLUTIDE
     Dosage: 2.6 MILLIGRAM (0.0500 MILLGRAM/KILLOGRAM),1/WEEK
     Route: 065
     Dates: start: 20190919
  31. TEDUGLUTIDE [Suspect]
     Active Substance: TEDUGLUTIDE
     Dosage: 2.6 MILLIGRAM (0.0500 MILLGRAM/KILLOGRAM),1/WEEK
     Route: 065
     Dates: start: 20190919

REACTIONS (5)
  - Bronchitis [Recovered/Resolved]
  - Hypocalcaemia [Recovered/Resolved]
  - Weight decreased [Recovered/Resolved]
  - Hypomagnesaemia [Recovered/Resolved]
  - Hypokalaemia [Recovered/Resolved]

NARRATIVE: CASE EVENT DATE: 20160901
